FAERS Safety Report 5651527-6 (Version None)
Quarter: 2008Q1

REPORT INFORMATION
  Report Type: 
  Country: None (occurrence: None)
  Receive Date: 20080305
  Receipt Date: 20080226
  Transmission Date: 20080703
  Serious: Yes (Other)
  Sender: FDA-Public Use
  Company Number: AT-BAYER-200813893GPV

PATIENT
  Age: 52 Year
  Sex: Female
  Weight: 60 kg

DRUGS (1)
  1. ULTRAVIST / IOPROMID 370 [Suspect]
     Indication: ANGIOGRAM
     Dosage: AS USED: 120 ML

REACTIONS (4)
  - NAUSEA [None]
  - PRURITUS [None]
  - SENSATION OF FOREIGN BODY [None]
  - SNEEZING [None]
